FAERS Safety Report 4724710-1 (Version None)
Quarter: 2005Q3

REPORT INFORMATION
  Report Type: 
  Country: None (occurrence: None)
  Receive Date: 20050720
  Receipt Date: 20050720
  Transmission Date: 20060218
  Serious: Yes (Hospitalization, Other)
  Sender: FDA-Public Use
  Company Number: None

PATIENT
  Age: 52 Year
  Sex: Female
  Weight: 67.1324 kg

DRUGS (1)
  1. AVELOX [Suspect]
     Indication: ASTHMA
     Dosage: 400 MG ONE DAILY PO
     Route: 048
     Dates: start: 20030905, end: 20030907

REACTIONS (12)
  - ANXIETY [None]
  - APHASIA [None]
  - DYSPHAGIA [None]
  - DYSPNOEA [None]
  - FEELING ABNORMAL [None]
  - NAIL DISCOLOURATION [None]
  - PALPITATIONS [None]
  - RESPIRATORY RATE INCREASED [None]
  - RESTLESSNESS [None]
  - THROAT TIGHTNESS [None]
  - TREMOR [None]
  - VOMITING [None]
